FAERS Safety Report 22070608 (Version 2)
Quarter: 2023Q1

REPORT INFORMATION
  Report Type: Spontaneous
  Country: US (occurrence: US)
  Receive Date: 20230307
  Receipt Date: 20230308
  Transmission Date: 20230418
  Serious: Yes (Other)
  Sender: FDA-Public Use
  Company Number: US-MLMSERVICE-20230223-4124359-1

PATIENT
  Age: 17 Year
  Sex: Female
  Weight: 81.5 kg

DRUGS (9)
  1. TACROLIMUS [Suspect]
     Active Substance: TACROLIMUS
     Dosage: UNK
  2. NIFEDIPINE [Concomitant]
     Active Substance: NIFEDIPINE
     Dosage: LOW DOSE
  3. IRON [Concomitant]
     Active Substance: IRON
     Dosage: LOW DOSE
  4. HYDROCHLOROTHIAZIDE [Concomitant]
     Active Substance: HYDROCHLOROTHIAZIDE
     Dosage: LOW DOSE
  5. CHOLECALCIFEROL [Concomitant]
     Active Substance: CHOLECALCIFEROL
     Dosage: LOW DOSE
  6. NORETHINDRONE [Concomitant]
     Active Substance: NORETHINDRONE
     Dosage: LOW DOSE
  7. AZATHIOPRINE [Concomitant]
     Active Substance: AZATHIOPRINE
     Dosage: LOW DOSE
  8. CLONIDINE [Concomitant]
     Active Substance: CLONIDINE
     Dosage: LOW DOSE
  9. ASPIRIN [Concomitant]
     Active Substance: ASPIRIN
     Indication: Renal vein thrombosis
     Dosage: LOW DOSE

REACTIONS (1)
  - Myoclonus [Recovered/Resolved]
